FAERS Safety Report 16269258 (Version 3)
Quarter: 2019Q2

REPORT INFORMATION
  Report Type: Report from Study
  Country: US (occurrence: US)
  Receive Date: 20190503
  Receipt Date: 20190528
  Transmission Date: 20190711
  Serious: Yes (Hospitalization, Other)
  Sender: FDA-Public Use
  Company Number: US-TAKEDA-2019TUS019213

PATIENT
  Age: 75 Year
  Sex: Male

DRUGS (1)
  1. IXAZOMIB [Suspect]
     Active Substance: IXAZOMIB
     Indication: PLASMA CELL MYELOMA
     Dosage: 4 MILLIGRAM
     Route: 048
     Dates: start: 20181220

REACTIONS (8)
  - Asthenia [Unknown]
  - Pericardial effusion [Unknown]
  - Pleural effusion [Unknown]
  - Eating disorder [Unknown]
  - Blood pressure decreased [Unknown]
  - Herpes zoster [Unknown]
  - Rash [Unknown]
  - Cerebrovascular accident [Recovered/Resolved]

NARRATIVE: CASE EVENT DATE: 20190502
